FAERS Safety Report 10385498 (Version 1)
Quarter: 2014Q1

REPORT INFORMATION
  Report Type: Spontaneous
  Country: US (occurrence: None)
  Receive Date: 20140306
  Receipt Date: 20140306
  Transmission Date: 20141002
  Serious: Yes (Hospitalization)
  Sender: FDA-Public Use
  Company Number: 163-21880-13042753

PATIENT
  Age: 65 Year
  Sex: Male

DRUGS (18)
  1. REVLIMID (LENALIDOMIDE) (25 MILLIGRAM, CAPSULES) [Suspect]
     Indication: PLASMA CELL MYELOMA
     Route: 048
     Dates: start: 201212, end: 2013
  2. CALCIUM [Concomitant]
  3. DEXAMETHASONE [Concomitant]
  4. LIPITOR (ATORVASTATIN) [Concomitant]
  5. METOPROLOL [Concomitant]
  6. ACYCLOVIR (ACICLOVIR) [Concomitant]
  7. DIGOXIN [Concomitant]
  8. ALPRAZOLAM [Concomitant]
  9. OXYCODONE [Concomitant]
  10. OMEPRAZOLE [Concomitant]
  11. WARFARIN [Concomitant]
  12. TYLENOL (PARACETAMOL) [Concomitant]
  13. SENNA PLUS [Concomitant]
  14. FISH OIL [Concomitant]
  15. LIDODERM [Concomitant]
  16. VITAMIN D (ERGOCALCIFEROL) [Concomitant]
  17. ASPIRIN (ACETYLSALICYLIC ACID) [Concomitant]
  18. METHOTREXATE [Concomitant]

REACTIONS (1)
  - Atrial fibrillation [None]
